FAERS Safety Report 5813648-4 (Version None)
Quarter: 2008Q3

REPORT INFORMATION
  Report Type: 
  Country: None (occurrence: None)
  Receive Date: 20080717
  Receipt Date: 20080714
  Transmission Date: 20090109
  Serious: Yes (Other)
  Sender: FDA-Public Use
  Company Number: A0737494A

PATIENT
  Age: 47 Year
  Sex: Female

DRUGS (5)
  1. LAMICTAL [Suspect]
     Indication: PARTIAL SEIZURES
     Dosage: 250MG TWICE PER DAY
     Route: 048
     Dates: start: 20080501
  2. TRILEPTAL [Suspect]
  3. HYDROCHLOROTHIAZIDE [Concomitant]
  4. ASPIRIN [Concomitant]
  5. VITAMIN TAB [Concomitant]

REACTIONS (9)
  - AMNESIA [None]
  - APHASIA [None]
  - BRUXISM [None]
  - COGNITIVE DISORDER [None]
  - CONVULSION [None]
  - DRUG INEFFECTIVE [None]
  - DYSKINESIA [None]
  - HYPOTONIA [None]
  - LOSS OF CONSCIOUSNESS [None]
